FAERS Safety Report 6684231-6 (Version None)
Quarter: 2010Q2

REPORT INFORMATION
  Report Type: 
  Country: None (occurrence: None)
  Receive Date: 20100416
  Receipt Date: 20100330
  Transmission Date: 20101027
  Serious: No
  Sender: FDA-Public Use
  Company Number: US-B.I. PHARMACEUTICALS,INC./RIDGEFIELD-2010-BP-00139BP

PATIENT
  Age: 70 Year
  Sex: Female

DRUGS (3)
  1. MIRAPEX [Suspect]
     Indication: RESTLESS LEGS SYNDROME
     Dosage: 1 MG
     Route: 048
  2. MIRAPEX [Suspect]
     Dosage: 4 MG
     Route: 048
  3. MIRAPEX [Suspect]
     Route: 048

REACTIONS (1)
  - DRUG EFFECT DECREASED [None]
